FAERS Safety Report 20446799 (Version 3)
Quarter: 2025Q3

REPORT INFORMATION
  Report Type: Report from Study
  Country: US (occurrence: US)
  Receive Date: 20220208
  Receipt Date: 20250713
  Transmission Date: 20251021
  Serious: Yes (Other)
  Sender: BIOGEN
  Company Number: US-BIOGEN-2022BI01093767

PATIENT
  Sex: Female

DRUGS (1)
  1. TYSABRI [Suspect]
     Active Substance: NATALIZUMAB
     Indication: Multiple sclerosis
     Dosage: INFUSED OVER AN HOUR
     Route: 050
     Dates: start: 20201111

REACTIONS (3)
  - Epilepsy [Not Recovered/Not Resolved]
  - Migraine [Unknown]
  - Pain in extremity [Unknown]
